FAERS Safety Report 7953199-4 (Version None)
Quarter: 2011Q4

REPORT INFORMATION
  Report Type: 
  Country: None (occurrence: None)
  Receive Date: 20111201
  Receipt Date: 20111122
  Transmission Date: 20120403
  Serious: Yes (Other)
  Sender: FDA-Public Use
  Company Number: US-ASTRAZENECA-2011SE58857

PATIENT
  Age: 86 Year
  Sex: Female

DRUGS (6)
  1. NEXIUM [Suspect]
     Route: 048
  2. ASPIRIN [Concomitant]
  3. ATACAND [Suspect]
     Route: 048
  4. COREG [Concomitant]
  5. PLAVIX [Concomitant]
  6. TOPROL-XL [Suspect]
     Route: 048

REACTIONS (11)
  - MYOCARDIAL INFARCTION [None]
  - VIRAL INFECTION [None]
  - LUNG CARCINOMA CELL TYPE UNSPECIFIED STAGE IV [None]
  - CYSTITIS [None]
  - NEUROPATHY PERIPHERAL [None]
  - KIDNEY INFECTION [None]
  - ULCER HAEMORRHAGE [None]
  - VERTIGO [None]
  - DIZZINESS [None]
  - SEPSIS [None]
  - THYROID DISORDER [None]
